FAERS Safety Report 8489459-0 (Version None)
Quarter: 2012Q3

REPORT INFORMATION
  Report Type: 
  Country: None (occurrence: None)
  Receive Date: 20120705
  Receipt Date: 20120702
  Transmission Date: 20120928
  Serious: Yes (Hospitalization)
  Sender: FDA-Public Use
  Company Number: IT-BAYER-2012-050528

PATIENT
  Age: 54 Year
  Sex: Female

DRUGS (2)
  1. BEVACIZUMAB [Concomitant]
     Dosage: UNK
     Dates: end: 20120601
  2. MAGNEVIST [Suspect]
     Indication: NUCLEAR MAGNETIC RESONANCE IMAGING
     Dosage: 20 ML, ONCE
     Route: 042
     Dates: start: 20120516, end: 20120516

REACTIONS (5)
  - MUSCULAR WEAKNESS [None]
  - PRESYNCOPE [None]
  - HYPERHIDROSIS [None]
  - SKIN WARM [None]
  - ASTHENIA [None]
